FAERS Safety Report 13814703 (Version 2)
Quarter: 2017Q3

REPORT INFORMATION
  Report Type: Spontaneous
  Country: JP (occurrence: JP)
  Receive Date: 20170731
  Receipt Date: 20170804
  Transmission Date: 20171127
  Serious: Yes (Death, Other)
  Sender: FDA-Public Use
  Company Number: JP-PFIZER INC-2013332219

PATIENT
  Age: 70 Year
  Sex: Female

DRUGS (3)
  1. METHOTREXATE SODIUM. [Suspect]
     Active Substance: METHOTREXATE SODIUM
     Dosage: UNK
  2. ARA-C [Concomitant]
     Active Substance: CYTARABINE
     Indication: LYMPHOMA
     Dosage: DOSE OF 40 OR 30 MG, TOTAL 640 MG
     Route: 037
  3. METHOTREXATE SODIUM. [Suspect]
     Active Substance: METHOTREXATE SODIUM
     Dosage: A DOSE OF 15 OR 12 MG, TOTAL DOSE OF 243MG
     Route: 037

REACTIONS (2)
  - Myelopathy [Fatal]
  - Aspergillus infection [Fatal]
